FAERS Safety Report 15999311 (Version 3)
Quarter: 2019Q4

REPORT INFORMATION
  Report Type: Spontaneous
  Country: US (occurrence: US)
  Receive Date: 20190225
  Receipt Date: 20191230
  Transmission Date: 20200122
  Serious: No
  Sender: FDA-Public Use
  Company Number: US-PFIZER INC-2019077964

PATIENT
  Age: 65 Year
  Sex: Female

DRUGS (1)
  1. LYRICA [Suspect]
     Active Substance: PREGABALIN
     Indication: POLYNEUROPATHY
     Dosage: 50 MG, 4X/DAY (TAKE 1 CAPSULE 4 TIMES DAILY)
     Route: 048

REACTIONS (3)
  - Memory impairment [Unknown]
  - Nasopharyngitis [Unknown]
  - Feeling abnormal [Unknown]
